FAERS Safety Report 17946173 (Version 3)
Quarter: 2021Q2

REPORT INFORMATION
  Report Type: Spontaneous
  Country: ES (occurrence: ES)
  Receive Date: 20200626
  Receipt Date: 20210513
  Transmission Date: 20210717
  Serious: Yes (Other)
  Sender: FDA-Public Use
  Company Number: ES-ROCHE-2629589

PATIENT
  Age: 86 Year
  Sex: Male

DRUGS (7)
  1. ENALAPRIL [Concomitant]
     Active Substance: ENALAPRIL
  2. ESCITALOPRAM [Concomitant]
     Active Substance: ESCITALOPRAM OXALATE
  3. LORATADINE. [Concomitant]
     Active Substance: LORATADINE
  4. ORFIDAL [Concomitant]
     Active Substance: LORAZEPAM
  5. CELLCEPT [Suspect]
     Active Substance: MYCOPHENOLATE MOFETIL\MYCOPHENOLATE MOFETIL HYDROCHLORIDE
     Indication: EYE PRURITUS
     Dosage: 2 TABLETS (MORNING?NIGHT)
     Route: 048
     Dates: start: 20191010
  6. FERROSANOL [Concomitant]
     Active Substance: FERROUS GLUCONATE
  7. PROLIA [Concomitant]
     Active Substance: DENOSUMAB

REACTIONS (15)
  - Amnesia [Unknown]
  - Alopecia [Not Recovered/Not Resolved]
  - Weight decreased [Unknown]
  - Pruritus [Unknown]
  - Clumsiness [Not Recovered/Not Resolved]
  - Toothache [Not Recovered/Not Resolved]
  - Off label use [Unknown]
  - Deafness unilateral [Not Recovered/Not Resolved]
  - Eye pain [Not Recovered/Not Resolved]
  - Back pain [Not Recovered/Not Resolved]
  - Blindness [Unknown]
  - Swelling of eyelid [Not Recovered/Not Resolved]
  - Tooth disorder [Not Recovered/Not Resolved]
  - Headache [Not Recovered/Not Resolved]
  - Oropharyngeal pain [Not Recovered/Not Resolved]
